FAERS Safety Report 9862077 (Version 6)
Quarter: 2016Q1

REPORT INFORMATION
  Report Type: Spontaneous
  Country: US (occurrence: US)
  Receive Date: 20140203
  Receipt Date: 20160310
  Transmission Date: 20160526
  Serious: Yes (Hospitalization, Disabling, Other)
  Sender: FDA-Public Use
  Company Number: US-009507513-1401USA011286

PATIENT
  Sex: Female
  Weight: 61.22 kg

DRUGS (3)
  1. OS-CAL + D [Concomitant]
     Indication: PRODUCT USED FOR UNKNOWN INDICATION
     Dosage: 500 MG, BID
     Route: 065
     Dates: start: 1995
  2. FOSAMAX [Suspect]
     Active Substance: ALENDRONATE SODIUM
     Indication: OSTEOPOROSIS
     Dosage: 70 MG, QW
     Route: 048
     Dates: start: 20040101, end: 20090604
  3. ALENDRONATE SODIUM. [Suspect]
     Active Substance: ALENDRONATE SODIUM
     Indication: OSTEOPOROSIS
     Dosage: UNK, UNKNOWN
     Route: 048
     Dates: start: 200803, end: 201102

REACTIONS (21)
  - Procedural complication [Recovered/Resolved]
  - Haematocrit decreased [Recovered/Resolved]
  - Device breakage [Unknown]
  - Blister [Unknown]
  - Gastrooesophageal reflux disease [Unknown]
  - Fall [Unknown]
  - Femur fracture [Unknown]
  - Osteoporosis [Unknown]
  - Meniscus injury [Unknown]
  - Nephrolithiasis [Unknown]
  - Fall [Unknown]
  - Removal of internal fixation [Unknown]
  - Fall [Unknown]
  - Joint effusion [Unknown]
  - Haematocrit decreased [Unknown]
  - Femur fracture [Recovering/Resolving]
  - Anxiety [Unknown]
  - Adverse event [Unknown]
  - Femur fracture [Recovering/Resolving]
  - Seizure [Unknown]
  - Device dislocation [Unknown]

NARRATIVE: CASE EVENT DATE: 20070613
